FAERS Safety Report 18936167 (Version 1)
Quarter: 2021Q1

REPORT INFORMATION
  Report Type: Spontaneous
  Country: CH (occurrence: CH)
  Receive Date: 20210224
  Receipt Date: 20210224
  Transmission Date: 20210420
  Serious: Yes (Hospitalization)
  Sender: FDA-Public Use
  Company Number: CH-009507513-2102CHE007290

PATIENT
  Sex: Male
  Weight: 69 kg

DRUGS (14)
  1. CALCIMAGON D3 [Concomitant]
     Active Substance: CALCIUM\CHOLECALCIFEROL
     Dosage: 1 DOSAGE FORM, ONCE DAILY
     Route: 048
  2. IRFEN [Suspect]
     Active Substance: IBUPROFEN
     Dosage: AS NECESSARY
     Route: 048
     Dates: end: 20210127
  3. MAGNESIOCARD [Concomitant]
     Active Substance: MAGNESIUM ASPARTATE HYDROCHLORIDE
     Dosage: 5 MILLIMOLE, ONCE DAILY
     Route: 048
     Dates: end: 202102
  4. VANNAIR [Concomitant]
     Active Substance: BUDESONIDE\FORMOTEROL FUMARATE DIHYDRATE
     Dosage: 2 PUFFS TWICE DAILY
     Route: 055
  5. ZYLORIC [Suspect]
     Active Substance: ALLOPURINOL
     Dosage: 300 MILLIGRAM, ONCE DAILY
     Route: 048
     Dates: end: 20210127
  6. FOLIC ACID. [Concomitant]
     Active Substance: FOLIC ACID
     Dosage: 5 MILLIGRAM, 2X/WEEK
     Route: 048
     Dates: end: 202102
  7. DEVILS CLAW [Suspect]
     Active Substance: HERBS\UNSPECIFIED INGREDIENT
     Dosage: 1 DOSAGE FORM, UNK
     Route: 048
     Dates: end: 20210127
  8. PANTOPRAZOLE [Suspect]
     Active Substance: PANTOPRAZOLE
     Dosage: 1 DOSAGE FORM, UNK
     Route: 048
     Dates: end: 20210127
  9. ELIQUIS [Suspect]
     Active Substance: APIXABAN
     Indication: ATRIAL FIBRILLATION
     Dosage: 2.5 MILLIGRAM, ONCE DAILY
     Route: 048
     Dates: end: 20210127
  10. KEYTRUDA [Suspect]
     Active Substance: PEMBROLIZUMAB
     Indication: METASTATIC MALIGNANT MELANOMA
     Dosage: CYCLICAL
     Route: 042
     Dates: start: 20200730, end: 20210104
  11. TOREM [Suspect]
     Active Substance: TORSEMIDE
     Dosage: 5 MILLIGRAM, ONCE DAILY
     Route: 048
     Dates: end: 20210127
  12. NEBIVOLOL. [Concomitant]
     Active Substance: NEBIVOLOL
     Dosage: 5 MILLIGRAM, ONCE DAILY
     Route: 048
  13. SPIRIVA [Concomitant]
     Active Substance: TIOTROPIUM BROMIDE MONOHYDRATE
     Dosage: 18 MICROGRAM, ONCE DAILY
     Route: 055
  14. ACETYLCYSTEINE. [Concomitant]
     Active Substance: ACETYLCYSTEINE
     Dosage: 200 MILLIGRAM, ONCE DAILY
     Route: 048
     Dates: end: 202102

REACTIONS (3)
  - Autoimmune hepatitis [Recovering/Resolving]
  - Drug-induced liver injury [Recovering/Resolving]
  - Jaundice [Recovering/Resolving]

NARRATIVE: CASE EVENT DATE: 20210124
